FAERS Safety Report 5798939-8 (Version None)
Quarter: 2008Q3

REPORT INFORMATION
  Report Type: 
  Country: None (occurrence: None)
  Receive Date: 20080702
  Receipt Date: 20080625
  Transmission Date: 20090109
  Serious: Yes (Other)
  Sender: FDA-Public Use
  Company Number: FR-PFIZER INC-2008050982

PATIENT
  Sex: Female
  Weight: 63 kg

DRUGS (8)
  1. CELEBREX [Suspect]
     Indication: CERVICAL ROOT PAIN
     Route: 048
  2. LYRICA [Suspect]
     Indication: CERVICAL ROOT PAIN
     Dosage: DAILY DOSE:50MG
     Route: 048
     Dates: start: 20080521, end: 20080606
  3. LYRICA [Suspect]
     Dosage: DAILY DOSE:75MG
     Route: 048
     Dates: start: 20080606, end: 20080601
  4. EFFEXOR [Suspect]
     Indication: DEPRESSION
     Route: 048
  5. NEXIUM [Concomitant]
  6. SPASFON-LYOC [Concomitant]
     Indication: ENTEROCOLITIS HAEMORRHAGIC
  7. MESALAMINE [Concomitant]
     Indication: ENTEROCOLITIS HAEMORRHAGIC
  8. XANAX [Concomitant]

REACTIONS (1)
  - HEPATITIS [None]
